FAERS Safety Report 6075844-3 (Version None)
Quarter: 2009Q1

REPORT INFORMATION
  Report Type: 
  Country: None (occurrence: None)
  Receive Date: 20090212
  Receipt Date: 20090210
  Transmission Date: 20090719
  Serious: Yes (Death, Life-Threatening, Hospitalization)
  Sender: FDA-Public Use
  Company Number: GB-WYE-G02924009

PATIENT
  Sex: Male

DRUGS (2)
  1. GEMTUZUMAB OZOGAMICIN [Suspect]
     Dosage: UNKNOWN
     Dates: start: 20090105, end: 20090114
  2. ARA-C [Suspect]
     Dosage: UNKNOWN
     Dates: start: 20090105, end: 20090114

REACTIONS (6)
  - ATRIAL FIBRILLATION [None]
  - CARDIAC FAILURE CONGESTIVE [None]
  - CONDITION AGGRAVATED [None]
  - ISCHAEMIC STROKE [None]
  - LEFT VENTRICULAR FAILURE [None]
  - NEUTROPENIC SEPSIS [None]
